FAERS Safety Report 22242292 (Version 1)
Quarter: 2023Q2

REPORT INFORMATION
  Report Type: Spontaneous
  Country: US (occurrence: US)
  Receive Date: 20230422
  Receipt Date: 20230422
  Transmission Date: 20230722
  Serious: Yes (Other)
  Sender: FDA-Public Use
  Company Number: US-AMGEN-USASP2023069158

PATIENT
  Age: 82 Year
  Sex: Female

DRUGS (3)
  1. ENBREL [Suspect]
     Active Substance: ETANERCEPT
     Indication: Arthropathy
     Dosage: 50 MILLIGRAM, QWK
     Route: 065
  2. ENBREL [Suspect]
     Active Substance: ETANERCEPT
     Indication: Off label use
  3. ENBREL [Suspect]
     Active Substance: ETANERCEPT
     Indication: Fluid retention

REACTIONS (7)
  - Glaucoma [Unknown]
  - Off label use [Unknown]
  - Accidental exposure to product [Unknown]
  - Incorrect dose administered by device [Unknown]
  - Dry mouth [Unknown]
  - Dry eye [Unknown]
  - Ear disorder [Unknown]

NARRATIVE: CASE EVENT DATE: 20230406
